FAERS Safety Report 9241790 (Version 1)
Quarter: 2013Q2

REPORT INFORMATION
  Report Type: Spontaneous
  Country: US (occurrence: US)
  Receive Date: 20130419
  Receipt Date: 20130419
  Transmission Date: 20140414
  Serious: No
  Sender: FDA-Public Use
  Company Number: US-SANOFI-AVENTIS-2013SA033342

PATIENT
  Age: 61 Year
  Sex: Male

DRUGS (1)
  1. ENOXAPARIN SODIUM - WINTHROP [Suspect]
     Route: 051
     Dates: start: 2013

REACTIONS (4)
  - Abdominal pain upper [Unknown]
  - Muscle spasms [Unknown]
  - Paraesthesia [Unknown]
  - Tremor [Unknown]
